FAERS Safety Report 7946834-8 (Version None)
Quarter: 2011Q4

REPORT INFORMATION
  Report Type: 
  Country: None (occurrence: None)
  Receive Date: 20111125
  Receipt Date: 20111111
  Transmission Date: 20120403
  Serious: Yes (Hospitalization)
  Sender: FDA-Public Use
  Company Number: 2011SP041925

PATIENT
  Age: 70 Year
  Sex: Female

DRUGS (7)
  1. VEGETAMIN-B (CHLORPROMAZINE_PROMETHAZINE COMBINED DRUG) [Concomitant]
  2. OMEPRAZOLE [Concomitant]
  3. REBETOL [Suspect]
     Indication: HEPATITIS C
     Dosage: 600 MG;QD;PO
     Route: 048
     Dates: start: 20100915, end: 20110627
  4. INTERFERON BETA NOS [Suspect]
     Indication: HEPATITIS C
     Dosage: 6 MIU;QD;IV, 6 MIU;TIW;IV
     Route: 042
     Dates: start: 20101015, end: 20110624
  5. INTERFERON BETA NOS [Suspect]
     Indication: HEPATITIS C
     Dosage: 6 MIU;QD;IV, 6 MIU;TIW;IV
     Route: 042
     Dates: start: 20100915, end: 20101014
  6. ZYPREXA [Concomitant]
  7. NITRAZEPAM [Concomitant]

REACTIONS (5)
  - DYSLALIA [None]
  - DIZZINESS [None]
  - TRANSIENT ISCHAEMIC ATTACK [None]
  - DYSARTHRIA [None]
  - ANAEMIA [None]
